FAERS Safety Report 5131684-0 (Version None)
Quarter: 2006Q4

REPORT INFORMATION
  Report Type: 
  Country: None (occurrence: None)
  Receive Date: 20061016
  Receipt Date: 20061016
  Transmission Date: 20070319
  Serious: Yes (Other)
  Sender: FDA-Public Use
  Company Number: None

PATIENT
  Age: 23 Year
  Sex: Female

DRUGS (3)
  1. ZOLOFT [Suspect]
     Dosage: 150 MG (150 MG, 1 IN 1 D) ORAL
     Route: 048
  2. PROPAVAN (PROPIOMAZINE MALEATE) [Concomitant]
  3. PROMETHAZINE HCL [Concomitant]

REACTIONS (4)
  - CAESAREAN SECTION [None]
  - DRUG EXPOSURE DURING PREGNANCY [None]
  - PANCREATITIS ACUTE [None]
  - PREGNANCY [None]
